FAERS Safety Report 15411564 (Version 1)
Quarter: 2018Q3

REPORT INFORMATION
  Report Type: Spontaneous
  Country: US (occurrence: US)
  Receive Date: 20180921
  Receipt Date: 20180921
  Transmission Date: 20181010
  Serious: No
  Sender: FDA-Public Use
  Company Number: US-009507513-1412USA006204

PATIENT
  Age: 28 Year
  Sex: Female

DRUGS (6)
  1. ZIDOVUDINE. [Suspect]
     Active Substance: ZIDOVUDINE
     Dosage: COURSE NUMBER: 1, TOTAL DAILY DOSE: 2 DF, STARTED IN 38 WEEKS OF GESTATION AND ENDED IN 38 WEEKS
     Route: 042
     Dates: start: 20131210, end: 20131210
  2. LAMIVUDINE AND ZIDOVUDINE [Suspect]
     Active Substance: LAMIVUDINE\ZIDOVUDINE
     Dosage: COURSE NUMBER: 1, TOTAL DAILY DOSE: 2 DF, STARTED IN 11 WEEKS OF GESTATION AND ENDED IN 38 WEEKS
     Route: 048
     Dates: start: 20130604, end: 20131210
  3. TENOFOVIR DISOPROXIL FUMARATE. [Suspect]
     Active Substance: TENOFOVIR DISOPROXIL FUMARATE
     Dosage: COURSE NUMBER: 1, TOTAL DAILY DOSE: 1 DF, STARTED IN ?39  WEEKS OF GESTATION, ENDED IN 11 WEEKS OF G
     Route: 048
     Dates: end: 20130604
  4. EMTRICITABINE [Suspect]
     Active Substance: EMTRICITABINE
     Dosage: UNK
     Dates: start: 2013
  5. ISENTRESS [Suspect]
     Active Substance: RALTEGRAVIR POTASSIUM
     Dosage: COURSE NUMBER: 1, TOTAL DAILY DOSE: 2 DF, STARTED IN ?39 WEEKS OF GESTATION
     Route: 048
  6. ZIDOVUDINE. [Suspect]
     Active Substance: ZIDOVUDINE
     Dosage: COURSE NUMBER: 2, TOTAL DAILY DOSE: 1 DF, STARTED IN 38 WEEKS OF GESTATION AND ENDED IN 38 WEEKS
     Route: 042

REACTIONS (2)
  - Maternal exposure during pregnancy [Recovered/Resolved]
  - No adverse event [Unknown]
